FAERS Safety Report 8778283 (Version 2)
Quarter: 2013Q1

REPORT INFORMATION
  Report Type: Spontaneous
  Country: US (occurrence: US)
  Receive Date: 20120912
  Receipt Date: 20130211
  Transmission Date: 20140127
  Serious: Yes (Other)
  Sender: FDA-Public Use
  Company Number: US-ASTRAZENECA-2012SE57752

PATIENT
  Age: 63 Year
  Sex: Male

DRUGS (3)
  1. SYMBICORT PMDI [Suspect]
     Route: 055
  2. SEREVENT [Concomitant]
  3. ALBUTEROL [Concomitant]

REACTIONS (7)
  - Cardiac failure congestive [Unknown]
  - Atrial fibrillation [Unknown]
  - Dyspnoea [Unknown]
  - Weight increased [Unknown]
  - Hyperphagia [Unknown]
  - Diabetes mellitus [Unknown]
  - Drug dose omission [Unknown]
